FAERS Safety Report 7593715-8 (Version None)
Quarter: 2011Q3

REPORT INFORMATION
  Report Type: 
  Country: None (occurrence: None)
  Receive Date: 20110706
  Receipt Date: 20110622
  Transmission Date: 20111222
  Serious: Yes (Other)
  Sender: FDA-Public Use
  Company Number: PHHY2010BR75161

PATIENT
  Age: 25 Year
  Sex: Male

DRUGS (4)
  1. TEGRETOL-XR [Suspect]
     Indication: CONVULSION
     Dosage: 400 MG, UNK
  2. ENDOFOLIN [Concomitant]
     Dosage: 1 DF, UNK
  3. TEGRETOL-XR [Suspect]
     Indication: PETIT MAL EPILEPSY
  4. TEGRETOL [Suspect]
     Indication: CONVULSION
     Dosage: 1 DF, TID
     Route: 048

REACTIONS (6)
  - FALL [None]
  - PHARYNGITIS [None]
  - EPILEPSY [None]
  - VITAMIN B12 DEFICIENCY [None]
  - HEAD INJURY [None]
  - PETIT MAL EPILEPSY [None]
